FAERS Safety Report 4496233-9 (Version None)
Quarter: 2004Q4

REPORT INFORMATION
  Report Type: 
  Country: None (occurrence: None)
  Receive Date: 20041109
  Receipt Date: 20041028
  Transmission Date: 20050328
  Serious: Yes (Death, Life-Threatening)
  Sender: FDA-Public Use
  Company Number: GB-JNJFOC-20041008202

PATIENT
  Sex: Female

DRUGS (9)
  1. REMICADE [Suspect]
     Indication: RHEUMATOID ARTHRITIS
     Route: 042
  2. METHOTREXATE [Concomitant]
  3. FOLIC ACID [Concomitant]
  4. FOSAMAX [Concomitant]
  5. COPROXAMOL [Concomitant]
  6. COPROXAMOL [Concomitant]
  7. AMITRIPTYLINE HCL [Concomitant]
  8. PREDNISOLONE [Concomitant]
  9. MEPTID [Concomitant]

REACTIONS (1)
  - DEATH [None]
